FAERS Safety Report 18679905 (Version 2)
Quarter: 2020Q4

REPORT INFORMATION
  Report Type: Report from Study
  Country: US (occurrence: US)
  Receive Date: 20201229
  Receipt Date: 20201231
  Transmission Date: 20210114
  Serious: No
  Sender: FDA-Public Use
  Company Number: US-ASTRAZENECA-2020SF66949

PATIENT
  Sex: Female

DRUGS (1)
  1. LYNPARZA [Suspect]
     Active Substance: OLAPARIB
     Indication: OVARIAN CANCER
     Route: 048
     Dates: start: 20200902

REACTIONS (5)
  - Product dose omission in error [Unknown]
  - Fungal infection [Recovering/Resolving]
  - Nephrolithiasis [Unknown]
  - Flank pain [Unknown]
  - Bacterial vaginosis [Recovering/Resolving]
